FAERS Safety Report 7637740-7 (Version None)
Quarter: 2011Q3

REPORT INFORMATION
  Report Type: 
  Country: None (occurrence: None)
  Receive Date: 20110727
  Receipt Date: 20110714
  Transmission Date: 20111222
  Serious: Yes (Hospitalization)
  Sender: FDA-Public Use
  Company Number: US-BIOGENIDEC-2011BI026039

PATIENT
  Age: 30 Year
  Sex: Female

DRUGS (3)
  1. AVONEX [Suspect]
     Indication: MULTIPLE SCLEROSIS
     Route: 030
     Dates: start: 20050824
  2. AVONEX [Suspect]
     Route: 030
     Dates: start: 20010224, end: 20030101
  3. AVONEX [Suspect]
     Route: 030
     Dates: start: 20030101, end: 20040201

REACTIONS (2)
  - UMBILICAL CORD AROUND NECK [None]
  - HYPOTENSION [None]
